FAERS Safety Report 13261639 (Version 11)
Quarter: 2018Q4

REPORT INFORMATION
  Report Type: Report from Study
  Country: BR (occurrence: BR)
  Receive Date: 20170222
  Receipt Date: 20181108
  Transmission Date: 20190204
  Serious: Yes (Life-Threatening, Hospitalization, Other)
  Sender: FDA-Public Use
  Company Number: PHHY2016BR028782

PATIENT
  Age: 62 Year
  Sex: Female
  Weight: 89 kg

DRUGS (10)
  1. EXJADE [Suspect]
     Active Substance: DEFERASIROX
     Dosage: 3 DF, QD (500 MG 28 TABLETS)
     Route: 048
  2. COMPLEX B [Concomitant]
     Active Substance: CALCIUM PANTOTHENATE\CYANOCOBALAMIN\NIACINAMIDE\PYRIDOXINE HYDROCHLORIDE\RIBOFLAVIN\THIAMINE MONONITRATE
     Indication: PRODUCT USED FOR UNKNOWN INDICATION
     Dosage: UNK
     Route: 048
  3. EXJADE [Suspect]
     Active Substance: DEFERASIROX
     Indication: MYELODYSPLASTIC SYNDROME
     Dosage: 500 MG, QD
     Route: 048
     Dates: start: 2014
  4. EXJADE [Suspect]
     Active Substance: DEFERASIROX
     Indication: ANAEMIA
     Dosage: 10 MG/KG, QD (2 TABLETS OF 500 MG DAILY)(1000 MG)
     Route: 048
  5. ERYTHROPOIETIN [Concomitant]
     Active Substance: ERYTHROPOIETIN
     Dosage: 2 DF, TIW
     Route: 058
  6. EXJADE [Suspect]
     Active Substance: DEFERASIROX
     Dosage: 1000 MG, QD
     Route: 048
     Dates: end: 20180903
  7. EXJADE [Suspect]
     Active Substance: DEFERASIROX
     Dosage: 500 MG, QD (EVERY DAY, AT 8:00 IN THE MORNING)
     Route: 048
  8. ERYTHROPOIETIN [Concomitant]
     Active Substance: ERYTHROPOIETIN
     Indication: ANAEMIA
     Dosage: 1 DF, TIW
     Route: 065
     Dates: start: 2013
  9. GLIBENCLAMIDE [Concomitant]
     Active Substance: GLYBURIDE
     Indication: DIABETES MELLITUS
     Dosage: 1 DF, QD
     Route: 048
  10. EXJADE [Suspect]
     Active Substance: DEFERASIROX
     Dosage: 1500 MG, UNK
     Route: 048
     Dates: start: 20180903

REACTIONS (21)
  - Malaise [Not Recovered/Not Resolved]
  - Weight decreased [Unknown]
  - Apathy [Unknown]
  - Pallor [Unknown]
  - Dizziness [Unknown]
  - Fatigue [Unknown]
  - Anaemia [Recovering/Resolving]
  - Gait inability [Unknown]
  - Memory impairment [Unknown]
  - Weight increased [Unknown]
  - Asthenia [Unknown]
  - Serum ferritin increased [Recovering/Resolving]
  - Wrong technique in product usage process [Unknown]
  - Discomfort [Unknown]
  - Drug ineffective [Not Recovered/Not Resolved]
  - Visual impairment [Unknown]
  - Blood iron increased [Not Recovered/Not Resolved]
  - Serum ferritin increased [Recovered/Resolved]
  - Haemoglobin increased [Recovered/Resolved]
  - Diabetes mellitus [Recovering/Resolving]
  - Serum ferritin decreased [Unknown]

NARRATIVE: CASE EVENT DATE: 2014
